FAERS Safety Report 7737373 (Version 5)
Quarter: 2015Q1

REPORT INFORMATION
  Report Type: Spontaneous
  Country: US (occurrence: US)
  Receive Date: 20101223
  Receipt Date: 20150323
  Transmission Date: 20150721
  Serious: Yes (Other)
  Sender: FDA-Public Use
  Company Number: US-AMGEN-TCS440079

PATIENT
  Age: 36 Year
  Sex: Female

DRUGS (2)
  1. ENBREL [Suspect]
     Active Substance: ETANERCEPT
     Indication: ANKYLOSING SPONDYLITIS
     Dosage: UNK
  2. ENBREL [Suspect]
     Active Substance: ETANERCEPT
     Indication: SPONDYLOARTHROPATHY
     Dosage: 50 MG, QWK
     Route: 058
     Dates: start: 2008

REACTIONS (21)
  - Postoperative adhesion [Recovered/Resolved]
  - Joint injury [Not Recovered/Not Resolved]
  - Injection site pruritus [Unknown]
  - Injection site rash [Unknown]
  - Ovarian cyst [Recovered/Resolved]
  - Swelling [Unknown]
  - Staphylococcal infection [Unknown]
  - Hair growth abnormal [Unknown]
  - Musculoskeletal stiffness [Unknown]
  - Ingrown hair [Recovered/Resolved]
  - Hypoaesthesia [Not Recovered/Not Resolved]
  - Endometriosis [Recovered/Resolved]
  - Localised infection [Unknown]
  - Hernia [Recovered/Resolved]
  - Musculoskeletal disorder [Unknown]
  - Crying [Not Recovered/Not Resolved]
  - Injection site pain [Not Recovered/Not Resolved]
  - Fall [Unknown]
  - Tendon injury [Not Recovered/Not Resolved]
  - Paraesthesia [Not Recovered/Not Resolved]
  - Ear infection staphylococcal [Unknown]

NARRATIVE: CASE EVENT DATE: 2008
